FAERS Safety Report 5216581-4 (Version None)
Quarter: 2007Q1

REPORT INFORMATION
  Report Type: 
  Country: None (occurrence: None)
  Receive Date: 20061130
  Receipt Date: 20060814
  Transmission Date: 20070707
  Serious: Yes (Hospitalization, Other)
  Sender: FDA-Public Use
  Company Number: US200608002908

PATIENT
  Age: 29 Year
  Sex: Female
  Weight: 83.9 kg

DRUGS (1)
  1. ZYPREXA [Suspect]
     Dosage: 30 MG
     Dates: start: 20021001, end: 20030101

REACTIONS (2)
  - PANCREATITIS [None]
  - PRESCRIBED OVERDOSE [None]
